FAERS Safety Report 11150384 (Version 1)
Quarter: 2015Q2

REPORT INFORMATION
  Report Type: Report from Study
  Country: BR (occurrence: BR)
  Receive Date: 20150531
  Receipt Date: 20150531
  Transmission Date: 20150821
  Serious: Yes (Hospitalization, Other)
  Sender: FDA-Public Use
  Company Number: PHHY2015BR062584

PATIENT
  Sex: Male
  Weight: 70 kg

DRUGS (4)
  1. LIPITOR [Suspect]
     Active Substance: ATORVASTATIN CALCIUM
     Indication: PRODUCT USED FOR UNKNOWN INDICATION
     Route: 065
  2. EXELON [Suspect]
     Active Substance: RIVASTIGMINE TARTRATE
     Indication: DEMENTIA
     Dosage: 2 DF, (6 MG 1 IN THE MORNING AND 1 IN THE EVENING)
     Route: 065
     Dates: end: 201410
  3. EXELON [Suspect]
     Active Substance: RIVASTIGMINE TARTRATE
     Dosage: 6 MG
     Route: 065
  4. EXELON PATCH [Suspect]
     Active Substance: RIVASTIGMINE
     Indication: DEMENTIA
     Dosage: 9.5 MG/10 CM, 1 PATCH DAILY
     Route: 062
     Dates: start: 201410, end: 201410

REACTIONS (5)
  - Vomiting [Recovered/Resolved]
  - Malaise [Recovered/Resolved]
  - Application site injury [Recovered/Resolved]
  - Gastritis [Recovered/Resolved]
  - Hypersensitivity [Recovered/Resolved]
